FAERS Safety Report 18145874 (Version 6)
Quarter: 2020Q4

REPORT INFORMATION
  Report Type: Spontaneous
  Country: PL (occurrence: PL)
  Receive Date: 20200813
  Receipt Date: 20201126
  Transmission Date: 20210113
  Serious: Yes (Hospitalization, Other)
  Sender: FDA-Public Use
  Company Number: PL-BEH-2020121145

PATIENT
  Age: 1 Day

DRUGS (6)
  1. DOPEGYT [Concomitant]
     Active Substance: METHYLDOPA
     Dosage: UNK
     Route: 064
     Dates: start: 2020, end: 2020
  2. RHOPHYLAC [Suspect]
     Active Substance: HUMAN RHO(D) IMMUNE GLOBULIN
     Dosage: 2 DAYS AFTER DELIVERY
     Route: 065
     Dates: start: 20200328, end: 20200328
  3. EUTHYROX [Concomitant]
     Active Substance: LEVOTHYROXINE SODIUM
     Dosage: UNK
     Route: 064
  4. RHOPHYLAC [Suspect]
     Active Substance: HUMAN RHO(D) IMMUNE GLOBULIN
     Indication: PRODUCT USED FOR UNKNOWN INDICATION
     Dosage: AT 30 WKS OF PREGNANCY
     Route: 064
     Dates: start: 2020, end: 2020
  5. RHOPHYLAC [Suspect]
     Active Substance: HUMAN RHO(D) IMMUNE GLOBULIN
     Dosage: 2 DAYS AFTER DELIVERY
     Route: 065
     Dates: start: 20200328, end: 20200328
  6. RHOPHYLAC [Suspect]
     Active Substance: HUMAN RHO(D) IMMUNE GLOBULIN
     Indication: PRODUCT USED FOR UNKNOWN INDICATION
     Dosage: AT 30 WKS OF PREGNANCY
     Route: 064
     Dates: start: 2020, end: 2020

REACTIONS (8)
  - Jaundice [Recovered/Resolved]
  - Anaemia [Not Recovered/Not Resolved]
  - Maternal exposure timing unspecified [Not Recovered/Not Resolved]
  - Ocular icterus [Recovered/Resolved]
  - Maternal exposure timing unspecified [Recovered/Resolved]
  - Coombs direct test positive [Unknown]
  - Yellow skin [Recovered/Resolved]
  - Maternal exposure timing unspecified [Unknown]

NARRATIVE: CASE EVENT DATE: 202003
